FAERS Safety Report 4928630-9 (Version None)
Quarter: 2006Q1

REPORT INFORMATION
  Report Type: 
  Country: None (occurrence: None)
  Receive Date: 20060227
  Receipt Date: 20060227
  Transmission Date: 20060701
  Serious: Yes (Hospitalization)
  Sender: FDA-Public Use
  Company Number: None

PATIENT
  Age: 80 Year
  Sex: Female
  Weight: 49.4421 kg

DRUGS (8)
  1. XELODA [Suspect]
     Indication: COLON CANCER METASTATIC
     Dosage: 1500MG  BID  X 14 DAYS
     Dates: start: 20051206
  2. BEVACIZUMAB [Suspect]
     Indication: COLON CANCER METASTATIC
     Dosage: 367.5 MG  Q 3 WK  IV
     Route: 042
     Dates: start: 20051206
  3. LEXAPRO [Concomitant]
  4. LOPERAMIDE [Concomitant]
  5. PROTONIX [Concomitant]
  6. SYNTHROID [Concomitant]
  7. FLAGYL [Concomitant]
  8. XALATAN [Concomitant]

REACTIONS (1)
  - CEREBRAL INFARCTION [None]
